FAERS Safety Report 16846896 (Version 1)
Quarter: 2019Q3

REPORT INFORMATION
  Report Type: Spontaneous
  Country: CA (occurrence: CA)
  Receive Date: 20190924
  Receipt Date: 20190924
  Transmission Date: 20191005
  Serious: Yes (Hospitalization)
  Sender: FDA-Public Use
  Company Number: CA-HLSUS-2019-CA-001121

PATIENT
  Age: 46 Year
  Sex: Male

DRUGS (4)
  1. ARIPIPRAZOLE. [Concomitant]
     Active Substance: ARIPIPRAZOLE
  2. VALPROIC ACID. [Concomitant]
     Active Substance: VALPROIC ACID
  3. RANITIDINE. [Concomitant]
     Active Substance: RANITIDINE
  4. CLOZAPINE. [Suspect]
     Active Substance: CLOZAPINE
     Indication: SCHIZOAFFECTIVE DISORDER
     Dosage: 150.0 MILLIGRAM  1 EVERY ONE DAY
     Route: 048

REACTIONS (4)
  - Myositis [Unknown]
  - Delirium [Unknown]
  - Viral infection [Unknown]
  - Carditis [Unknown]
